FAERS Safety Report 6407904-9 (Version None)
Quarter: 2009Q4

REPORT INFORMATION
  Report Type: 
  Country: None (occurrence: None)
  Receive Date: 20091016
  Receipt Date: 20090930
  Transmission Date: 20100525
  Serious: Yes (Hospitalization)
  Sender: FDA-Public Use
  Company Number: DSA_41820_2009

PATIENT
  Sex: Male

DRUGS (17)
  1. TILDIEM (TILDIEM-DILTIAZEM HYDRCHLORIDE) (NOT SPECIFIED) [Suspect]
     Indication: DRUG USE FOR UNKNOWN INDICATION
     Dosage: (300 MG QD)
  2. ZOCOR [Suspect]
     Indication: DRUG USE FOR UNKNOWN INDICATION
     Dosage: (10 MG QD ORAL)
     Route: 048
  3. HYDROCHLOROTHIAZIDE [Concomitant]
  4. AZATHIOPRINE [Concomitant]
  5. PREDNISOLONE [Concomitant]
  6. MONO-CEDOCARD RETARD-ISOSORBIDE MONONITRATE [Concomitant]
  7. NITROGLYCERIN [Concomitant]
  8. CONTRALUM ULTRA /01481101/ [Concomitant]
  9. CALMURID /00232101/ [Concomitant]
  10. DENOREX RX [Concomitant]
  11. ENALAPRIL [Concomitant]
  12. AMARYL [Concomitant]
  13. ALADARA-IMIQUIMOD [Concomitant]
  14. UREM [Concomitant]
  15. SELOKEEN ZOC-METOPROLOL SUCCINATE [Concomitant]
  16. METFORMIN HYDROCHLORIDE [Concomitant]
  17. LOSEC /00661201/ [Concomitant]

REACTIONS (2)
  - DRUG INTERACTION [None]
  - MUSCLE RUPTURE [None]
